FAERS Safety Report 14208110 (Version 1)
Quarter: 2017Q4

REPORT INFORMATION
  Report Type: Spontaneous
  Country: ZA (occurrence: ZA)
  Receive Date: 20171121
  Receipt Date: 20171121
  Transmission Date: 20180321
  Serious: No
  Sender: FDA-Public Use
  Company Number: ZA-LUPIN PHARMACEUTICALS INC.-2017-01603

PATIENT
  Sex: Female

DRUGS (6)
  1. LOMANOR [Suspect]
     Active Substance: AMLODIPINE BESYLATE
     Indication: HYPERTENSION
     Dosage: 10 MG, DAILY
     Route: 048
     Dates: start: 20160920
  2. MYLAN FUROSEMIDE [Suspect]
     Active Substance: FUROSEMIDE
     Indication: DIURETIC THERAPY
     Dosage: 40 MG, DAILY
     Route: 048
     Dates: start: 20160920
  3. METFORMIN [Suspect]
     Active Substance: METFORMIN HYDROCHLORIDE
     Indication: DIABETES MELLITUS
     Dosage: 850 MG, DAILY
     Route: 048
     Dates: start: 20160920
  4. DIAGLUCIDE [Suspect]
     Active Substance: GLICLAZIDE
     Indication: DIABETES MELLITUS
     Dosage: 80 MG, DAILY
     Route: 048
     Dates: start: 20160920
  5. CIPLA SIMVASTATIN [Suspect]
     Active Substance: SIMVASTATIN
     Indication: BLOOD CHOLESTEROL ABNORMAL
     Dosage: 20 MG, DAILY
     Route: 048
     Dates: start: 20160920
  6. LISORETIC 20/12,5 [Suspect]
     Active Substance: HYDROCHLOROTHIAZIDE\LISINOPRIL
     Indication: HYPERTENSION
     Dosage: 20/12.5MG DAILY
     Route: 048
     Dates: start: 20160920

REACTIONS (1)
  - Peripheral swelling [Unknown]
